FAERS Safety Report 7610201-7 (Version None)
Quarter: 2011Q3

REPORT INFORMATION
  Report Type: 
  Country: None (occurrence: None)
  Receive Date: 20110715
  Receipt Date: 20110707
  Transmission Date: 20111222
  Serious: No
  Sender: FDA-Public Use
  Company Number: US-BIOGENIDEC-2011BI025487

PATIENT
  Sex: Female

DRUGS (3)
  1. AVONEX [Suspect]
     Indication: MULTIPLE SCLEROSIS
     Route: 030
     Dates: start: 20110305
  2. AVONEX [Suspect]
     Route: 030
     Dates: start: 20090202, end: 20090625
  3. AVONEX [Suspect]
     Route: 030
     Dates: start: 20091229, end: 20101201

REACTIONS (1)
  - MEMORY IMPAIRMENT [None]
